FAERS Safety Report 5099609-4 (Version None)
Quarter: 2006Q3

REPORT INFORMATION
  Report Type: 
  Country: None (occurrence: None)
  Receive Date: 20060906
  Receipt Date: 20060823
  Transmission Date: 20061208
  Serious: Yes (Other)
  Sender: FDA-Public Use
  Company Number: 2006096775

PATIENT
  Age: 15 Year
  Sex: Female
  Weight: 47 kg

DRUGS (7)
  1. ZITHROMAX [Suspect]
     Indication: ANTIBIOTIC PROPHYLAXIS
     Dosage: 500 MG (500 MG, 3 IN 1 WK), ORAL
     Route: 048
     Dates: start: 20040101
  2. COLOMYCIN (COLISTIN) [Concomitant]
  3. PULMOZYME [Concomitant]
  4. CREON [Concomitant]
  5. MULTIVITAMIN [Concomitant]
  6. VENTOLIN [Concomitant]
  7. SERETIDE (FLUTICASONE PROPIONATE, SALMETEROL XINAFOATE) [Concomitant]

REACTIONS (3)
  - HAEMORRHAGE [None]
  - HYPOGLYCAEMIA [None]
  - TREMOR [None]
